FAERS Safety Report 19710525 (Version 1)
Quarter: 2021Q3

REPORT INFORMATION
  Report Type: Spontaneous
  Country: ES (occurrence: ES)
  Receive Date: 20210817
  Receipt Date: 20210817
  Transmission Date: 20211014
  Serious: Yes (Other)
  Sender: FDA-Public Use
  Company Number: ES-SA-2021SA249581

PATIENT
  Age: 25 Year
  Sex: Female

DRUGS (2)
  1. LEFLUNOMIDE. [Suspect]
     Active Substance: LEFLUNOMIDE
     Indication: SYSTEMIC LUPUS ERYTHEMATOSUS
     Dosage: THREE DAILY DOSES OF 100 MG EACH
  2. LEFLUNOMIDE. [Suspect]
     Active Substance: LEFLUNOMIDE
     Dosage: FOLLOWED BY A MAINTENANCE DOSE OF 20 MG DAILY

REACTIONS (16)
  - Lip blister [Recovered/Resolved]
  - Skin atrophy [Recovered/Resolved]
  - Epidermal necrosis [Recovered/Resolved]
  - Skin hyperpigmentation [Recovered/Resolved]
  - Dermatitis bullous [Recovered/Resolved]
  - Lymphocytic infiltration [Recovered/Resolved]
  - Exfoliative rash [Recovered/Resolved]
  - Photosensitivity reaction [Recovered/Resolved]
  - Rash pruritic [Recovered/Resolved]
  - Pustule [Recovered/Resolved]
  - Eczema [Recovered/Resolved]
  - Rash maculo-papular [Recovered/Resolved]
  - Rash erythematous [Recovered/Resolved]
  - Blister [Recovered/Resolved]
  - Ecchymosis [Recovered/Resolved]
  - Eosinophilia [Recovered/Resolved]
